FAERS Safety Report 19022255 (Version 4)
Quarter: 2021Q3

REPORT INFORMATION
  Report Type: Spontaneous
  Country: DE (occurrence: DE)
  Receive Date: 20210318
  Receipt Date: 20210817
  Transmission Date: 20211014
  Serious: Yes (Hospitalization, Other)
  Sender: FDA-Public Use
  Company Number: DE-AMGEN-DEUNI2021038993

PATIENT
  Age: 80 Year
  Sex: Female

DRUGS (13)
  1. COVID?19 VACCINE [Concomitant]
     Indication: COVID-19 PROPHYLAXIS
     Dosage: UNK
     Dates: start: 20210501
  2. OCREVUS [Suspect]
     Active Substance: OCRELIZUMAB
     Indication: SECONDARY PROGRESSIVE MULTIPLE SCLEROSIS
     Dosage: 300 MILLIGRAM
     Route: 042
     Dates: start: 20191024
  3. ALDACTONE [Concomitant]
     Active Substance: SPIRONOLACTONE
     Dosage: 50 MILLIGRAM, QD
  4. METOPROLOL. [Concomitant]
     Active Substance: METOPROLOL
     Dosage: UNK
  5. CARMEN [LERCANIDIPINE HYDROCHLORIDE] [Concomitant]
     Active Substance: LERCANIDIPINE HYDROCHLORIDE
     Indication: HYPERTENSION
     Dosage: 10 MILLIGRAM,0.5 DAY
  6. OCREVUS [Suspect]
     Active Substance: OCRELIZUMAB
     Indication: PROGRESSIVE RELAPSING MULTIPLE SCLEROSIS
     Dosage: 600 MILLIGRAM
     Route: 042
     Dates: start: 202005
  7. ATENOLOL. [Concomitant]
     Active Substance: ATENOLOL
     Indication: HYPERTENSION
     Dosage: 50 MILLIGRAM, 0.5 DAY
  8. CORTISONE [Concomitant]
     Active Substance: CORTISONE
     Dosage: UNK
  9. TARGIN [Concomitant]
     Active Substance: NALOXONE HYDROCHLORIDE\OXYCODONE HYDROCHLORIDE
     Indication: PAIN
     Dosage: 10 MILLIGRAM, 0.5 DAY
  10. PROLIA [Suspect]
     Active Substance: DENOSUMAB
     Indication: PRODUCT USED FOR UNKNOWN INDICATION
     Dosage: UNK, Q6MO
     Route: 065
  11. OCREVUS [Suspect]
     Active Substance: OCRELIZUMAB
     Indication: PRIMARY PROGRESSIVE MULTIPLE SCLEROSIS
     Dosage: 300 MILLIGRAM
     Route: 042
     Dates: start: 20191106
  12. OCREVUS [Suspect]
     Active Substance: OCRELIZUMAB
     Dosage: 600 MILLIGRAM,
     Route: 042
     Dates: start: 20210216
  13. ARTHROTEC FORTE [Concomitant]
     Active Substance: DICLOFENAC SODIUM\MISOPROSTOL
     Dosage: UNK

REACTIONS (18)
  - Incisional hernia [Recovered/Resolved]
  - Cough [Recovered/Resolved]
  - Lymphocyte count decreased [Recovered/Resolved]
  - Glomerular filtration rate decreased [Not Recovered/Not Resolved]
  - Fall [Unknown]
  - Skin abrasion [Not Recovered/Not Resolved]
  - Blood pressure increased [Recovered/Resolved]
  - Gait disturbance [Not Recovered/Not Resolved]
  - Nasal congestion [Recovered/Resolved]
  - Pain [Not Recovered/Not Resolved]
  - Drug ineffective [Unknown]
  - Blood test abnormal [Recovered/Resolved]
  - Incontinence [Recovering/Resolving]
  - Sensory disturbance [Not Recovered/Not Resolved]
  - Diarrhoea [Recovered/Resolved]
  - Oral herpes [Recovered/Resolved]
  - Blood creatinine increased [Not Recovered/Not Resolved]
  - Muscle spasms [Recovered/Resolved]

NARRATIVE: CASE EVENT DATE: 20191024
